FAERS Safety Report 4919953-8 (Version None)
Quarter: 2006Q1

REPORT INFORMATION
  Report Type: 
  Country: None (occurrence: None)
  Receive Date: 20060216
  Receipt Date: 20060209
  Transmission Date: 20060701
  Serious: Yes (Other)
  Sender: FDA-Public Use
  Company Number: 2006018307

PATIENT
  Age: 37 Year
  Sex: Male

DRUGS (3)
  1. SERTRALINE [Suspect]
     Indication: DEPRESSION
     Dosage: 50 MG
  2. CYCLOSPORINE [Suspect]
     Indication: DERMATITIS ATOPIC
     Dosage: 50 MG
  3. ... [Concomitant]

REACTIONS (5)
  - DECREASED APPETITE [None]
  - DRUG INTERACTION [None]
  - MYOPATHY TOXIC [None]
  - SLEEP DISORDER [None]
  - TREMOR [None]
